FAERS Safety Report 6375096-0 (Version None)
Quarter: 2009Q3

REPORT INFORMATION
  Report Type: 
  Country: None (occurrence: None)
  Receive Date: 20090924
  Receipt Date: 20090918
  Transmission Date: 20100115
  Serious: Yes (Hospitalization)
  Sender: FDA-Public Use
  Company Number: US-GILEAD-2009-0024355

PATIENT
  Age: 48 Year
  Sex: Female
  Weight: 59.928 kg

DRUGS (12)
  1. LETAIRIS [Suspect]
     Indication: PULMONARY ARTERIAL HYPERTENSION
     Route: 048
     Dates: start: 20081029
  2. VANCOMYCIN [Concomitant]
  3. CELLCEPT [Concomitant]
  4. COREG [Concomitant]
  5. ADALAT CC [Concomitant]
  6. ZOLOFT [Concomitant]
  7. PREDNISONE [Concomitant]
  8. COLCHICINE [Concomitant]
  9. EVOXAC [Concomitant]
  10. XOPENEX [Concomitant]
  11. PREVACID [Concomitant]
  12. CELEXA [Concomitant]

REACTIONS (1)
  - PNEUMONIA [None]
